FAERS Safety Report 23984857 (Version 6)
Quarter: 2024Q4

REPORT INFORMATION
  Report Type: Report from Study
  Country: KR (occurrence: KR)
  Receive Date: 20240618
  Receipt Date: 20241115
  Transmission Date: 20250114
  Serious: Yes (Hospitalization)
  Sender: ABBVIE
  Company Number: KR-ABBVIE-5800598

PATIENT
  Age: 80 Year
  Sex: Female
  Weight: 62 kg

DRUGS (102)
  1. VENCLEXTA [Suspect]
     Active Substance: VENETOCLAX
     Indication: Acute myeloid leukaemia
     Dosage: FORM STRENGTH- 50MG
     Route: 048
     Dates: start: 20240412, end: 20240430
  2. VENCLEXTA [Suspect]
     Active Substance: VENETOCLAX
     Indication: Acute myeloid leukaemia
     Dosage: FORM STRENGTH- 150MG
     Route: 048
     Dates: start: 20240501, end: 20240606
  3. VENCLEXTA [Suspect]
     Active Substance: VENETOCLAX
     Indication: Acute myeloid leukaemia
     Dosage: FORM STRENGTH-50MG
     Route: 048
     Dates: start: 20240617, end: 20240714
  4. VENCLEXTA [Suspect]
     Active Substance: VENETOCLAX
     Indication: Acute myeloid leukaemia
     Dosage: FORM STRENGTH-100 MG
     Route: 048
     Dates: start: 20240715, end: 20240812
  5. VENCLEXTA [Suspect]
     Active Substance: VENETOCLAX
     Indication: Acute myeloid leukaemia
     Dosage: FORM STRENGTH-100MG
     Route: 048
     Dates: start: 20240909, end: 20240922
  6. VENCLEXTA [Suspect]
     Active Substance: VENETOCLAX
     Indication: Acute myeloid leukaemia
     Dosage: FORM STRENGTH-200MG
     Route: 048
     Dates: start: 20240828, end: 20240908
  7. MIRTAZAPINE [Suspect]
     Active Substance: MIRTAZAPINE
     Indication: Insomnia
     Dosage: FORM STRENGTH- 0.5MG
     Route: 048
     Dates: start: 20240607, end: 20240607
  8. DACOGEN [Concomitant]
     Active Substance: DECITABINE
     Indication: Acute myeloid leukaemia
     Route: 042
     Dates: start: 20240412, end: 20240416
  9. DACOGEN [Concomitant]
     Active Substance: DECITABINE
     Indication: Acute myeloid leukaemia
     Route: 042
     Dates: start: 20240510, end: 20240514
  10. DACOGEN [Concomitant]
     Active Substance: DECITABINE
     Indication: Acute myeloid leukaemia
     Route: 042
     Dates: start: 20240617, end: 20240621
  11. DACOGEN [Concomitant]
     Active Substance: DECITABINE
     Indication: Acute myeloid leukaemia
     Route: 042
     Dates: start: 20240715, end: 20240719
  12. DACOGEN [Concomitant]
     Active Substance: DECITABINE
     Indication: Acute myeloid leukaemia
     Route: 042
     Dates: start: 20240828, end: 20240901
  13. Esomezol [Concomitant]
     Indication: Abdominal pain upper
     Route: 048
     Dates: start: 20240417, end: 20240520
  14. Esomezol [Concomitant]
     Indication: Abdominal pain upper
     Route: 048
     Dates: start: 20240614, end: 20240701
  15. Esomezol [Concomitant]
     Indication: Abdominal pain upper
     Route: 048
     Dates: start: 20240913
  16. VITAMINS [Concomitant]
     Active Substance: VITAMINS
     Indication: Vitamin supplementation
     Dosage: UNIT DOSE: 1 VIAL
     Route: 042
     Dates: start: 20240413, end: 20240414
  17. SPORANOX [Concomitant]
     Active Substance: ITRACONAZOLE
     Indication: Antifungal prophylaxis
     Dosage: FORM STRENGTH-100MG
     Route: 048
     Dates: start: 20241008, end: 20241021
  18. NOXAFIL [Concomitant]
     Active Substance: POSACONAZOLE
     Indication: Antifungal prophylaxis
     Dosage: FORM STRENGTH-100MG
     Route: 048
     Dates: start: 20240617, end: 20240617
  19. NOXAFIL [Concomitant]
     Active Substance: POSACONAZOLE
     Indication: Antifungal prophylaxis
     Dosage: FORM STRENGTH-100MG
     Route: 048
     Dates: start: 20240618
  20. NOXAFIL [Concomitant]
     Active Substance: POSACONAZOLE
     Indication: Antifungal prophylaxis
     Dosage: FORM STRENGTH-100MG
     Route: 048
     Dates: start: 20240413, end: 20240413
  21. NOXAFIL [Concomitant]
     Active Substance: POSACONAZOLE
     Indication: Antifungal prophylaxis
     Dosage: FORM STRENGTH-100MG
     Route: 048
     Dates: start: 20240414, end: 20240430
  22. TWYNSTA [Concomitant]
     Active Substance: AMLODIPINE BESYLATE\TELMISARTAN
     Indication: Hypertension
     Route: 048
     Dates: start: 20241003, end: 20241021
  23. Dulackhan easy [Concomitant]
     Indication: Constipation
     Route: 048
     Dates: start: 20240607, end: 20240611
  24. Dulackhan easy [Concomitant]
     Indication: Constipation
     Route: 048
     Dates: start: 20240617, end: 20240620
  25. METOCLOPRAMIDE HYDROCHLORIDE [Concomitant]
     Active Substance: METOCLOPRAMIDE HYDROCHLORIDE
     Indication: Nausea
     Dosage: FORM STRENGTH- 2ML
     Route: 042
     Dates: start: 20240418, end: 20240428
  26. METOCLOPRAMIDE HYDROCHLORIDE [Concomitant]
     Active Substance: METOCLOPRAMIDE HYDROCHLORIDE
     Indication: Nausea
     Dosage: FORM STRENGTH-2ML
     Route: 042
     Dates: start: 20241002, end: 20241002
  27. METOCLOPRAMIDE HYDROCHLORIDE [Concomitant]
     Active Substance: METOCLOPRAMIDE HYDROCHLORIDE
     Indication: Nausea
     Dosage: TIME INTERVAL: 0.33333333 DAYS: FORM STRENGTH- 2ML
     Route: 042
     Dates: start: 20240925, end: 20240929
  28. ANAPROX [Concomitant]
     Active Substance: NAPROXEN SODIUM
     Indication: Abdominal pain
     Route: 048
     Dates: start: 20240417, end: 20240423
  29. ANAPROX [Concomitant]
     Active Substance: NAPROXEN SODIUM
     Indication: Abdominal pain
     Route: 048
     Dates: start: 20240614, end: 20240619
  30. Kukje ceftriaxone na [Concomitant]
     Indication: Pyrexia
     Route: 042
     Dates: start: 20240410, end: 20240417
  31. MUCOBARRIER [Concomitant]
     Indication: Prophylaxis
     Dosage: TIME INTERVAL: AS NECESSARY: MOUTH WASH
     Route: 050
     Dates: start: 20240607
  32. MEGACE F [Concomitant]
     Indication: Prophylaxis
     Dosage: SUSPENSION
     Route: 048
     Dates: start: 20240430, end: 20240510
  33. MEGACE F [Concomitant]
     Indication: Prophylaxis
     Dosage: SUSPENSION
     Route: 048
     Dates: start: 20240614, end: 20240621
  34. VESICARE [Concomitant]
     Active Substance: SOLIFENACIN SUCCINATE
     Indication: Urinary retention
     Route: 048
     Dates: start: 20240521, end: 20240612
  35. VESICARE [Concomitant]
     Active Substance: SOLIFENACIN SUCCINATE
     Indication: Urinary retention
     Route: 048
     Dates: start: 20240613
  36. ANEPOL [Concomitant]
     Indication: Premedication
     Dosage: UNIT DOSE - 20 MG
     Route: 042
     Dates: start: 20240412, end: 20240412
  37. MAGNESIUM HYDROXIDE [Concomitant]
     Active Substance: MAGNESIUM HYDROXIDE
     Indication: Constipation
     Dosage: FORM STRENGTH- 500 MG
     Route: 048
     Dates: start: 20240410, end: 20240413
  38. MAGNESIUM HYDROXIDE [Concomitant]
     Active Substance: MAGNESIUM HYDROXIDE
     Indication: Constipation
     Dosage: FORM STRENGTH- 500MG
     Route: 048
     Dates: start: 20240614, end: 20240719
  39. MAGNESIUM HYDROXIDE [Concomitant]
     Active Substance: MAGNESIUM HYDROXIDE
     Indication: Constipation
     Dosage: FORM STRENGTH- 500MG
     Route: 048
     Dates: start: 20240617, end: 20240620
  40. DICHLOZID [Concomitant]
     Indication: Hypertension
     Route: 048
     Dates: start: 20240423, end: 20240426
  41. PROPRANOLOL HYDROCHLORIDE [Concomitant]
     Active Substance: PROPRANOLOL HYDROCHLORIDE
     Indication: Tremor
     Route: 048
     Dates: start: 20240511, end: 20240514
  42. PROPRANOLOL HYDROCHLORIDE [Concomitant]
     Active Substance: PROPRANOLOL HYDROCHLORIDE
     Indication: Tremor
     Route: 048
     Dates: start: 20240524, end: 20240621
  43. PROPRANOLOL HYDROCHLORIDE [Concomitant]
     Active Substance: PROPRANOLOL HYDROCHLORIDE
     Indication: Tremor
     Route: 048
     Dates: start: 20240508, end: 20240510
  44. PROPRANOLOL HYDROCHLORIDE [Concomitant]
     Active Substance: PROPRANOLOL HYDROCHLORIDE
     Indication: Tremor
     Route: 048
     Dates: start: 202407
  45. Diclomed [Concomitant]
     Indication: Prophylaxis
     Dosage: TIME INTERVAL: AS NECESSARY: SOLUTION  0.074%?FREQUENCY TEXT: PRN
     Route: 050
     Dates: start: 20240607
  46. REBAMIPIDE [Concomitant]
     Active Substance: REBAMIPIDE
     Indication: Gastritis prophylaxis
     Dosage: TIME INTERVAL: 0.33333333 DAYS: FORM STRENGTH- 100MG
     Route: 048
     Dates: start: 20241004, end: 20241021
  47. ATACAND [Concomitant]
     Active Substance: CANDESARTAN CILEXETIL
     Indication: Hypertension
     Route: 048
     Dates: start: 20240427
  48. LEVOFLOXACIN [Concomitant]
     Active Substance: LEVOFLOXACIN
     Indication: Infection prophylaxis
     Dosage: 500 MG
     Route: 048
     Dates: start: 20240607, end: 20240610
  49. LEVOFLOXACIN [Concomitant]
     Active Substance: LEVOFLOXACIN
     Indication: Infection prophylaxis
     Route: 048
     Dates: start: 20240621
  50. NEXIUM [Concomitant]
     Active Substance: ESOMEPRAZOLE MAGNESIUM
     Indication: Nausea
     Dosage: FORM STRENGTH- 40MG
     Route: 042
     Dates: start: 20240930, end: 20241004
  51. DIFLUCAN [Concomitant]
     Active Substance: FLUCONAZOLE
     Indication: Antifungal prophylaxis
     Dosage: FORM STRENGTH- 50 MG
     Route: 048
     Dates: start: 20240501
  52. BANAN [Concomitant]
     Active Substance: CEFPODOXIME PROXETIL
     Indication: Infection prophylaxis
     Route: 048
     Dates: start: 20240621
  53. X-PAIN SEMI [Concomitant]
     Indication: Arthralgia
     Route: 048
     Dates: start: 20240828, end: 20240908
  54. PENIRAMIN [Concomitant]
     Indication: Premedication
     Dosage: FORM STRENGTH- 4MG
     Route: 042
     Dates: start: 20240611, end: 20240611
  55. PENIRAMIN [Concomitant]
     Indication: Premedication
     Dosage: FORM STRENGTH- 4MG
     Route: 042
     Dates: start: 20240531, end: 20240531
  56. PENIRAMIN [Concomitant]
     Indication: Premedication
     Dosage: TIME INTERVAL: AS NECESSARY: FORM STRENGTH- 4MG
     Route: 042
     Dates: start: 20240410
  57. GELMA [Concomitant]
     Indication: Abdominal pain upper
     Dosage: TIME INTERVAL: 0.33333333 DAYS: SUSPENSION
     Route: 048
     Dates: start: 20240924, end: 20240926
  58. Levoplus [Concomitant]
     Indication: Infection prophylaxis
     Route: 048
     Dates: start: 20240417
  59. NEUPOGEN [Concomitant]
     Active Substance: FILGRASTIM
     Indication: Neutrophil count decreased
     Dosage: 150 G/0.6ML
     Route: 058
     Dates: start: 20240607, end: 20240607
  60. DULCOLAX-S [Concomitant]
     Indication: Constipation
     Route: 048
     Dates: start: 20240731
  61. PENIRAMIN [Concomitant]
     Indication: Insomnia
     Dosage: FORM STRENGTH- 2MG
     Route: 048
     Dates: start: 20240419, end: 20240422
  62. COUGH SYRUP [Concomitant]
     Active Substance: DEXTROMETHORPHAN HYDROBROMIDE\GUAIFENESIN
     Indication: Prophylaxis
     Dosage: TIME INTERVAL: 0.33333333 DAYS
     Route: 048
     Dates: start: 20240715, end: 20240717
  63. Furix [Concomitant]
     Indication: Cardiac failure
     Route: 048
     Dates: start: 20240427, end: 20240610
  64. Furix [Concomitant]
     Indication: Cardiac failure
     Route: 048
     Dates: start: 20240715
  65. TRAZODONE HYDROCHLORIDE [Concomitant]
     Active Substance: TRAZODONE HYDROCHLORIDE
     Indication: Insomnia
     Dosage: FORM STRENGTH- 25MG
     Route: 048
     Dates: start: 20240421, end: 20240502
  66. TRAZODONE HYDROCHLORIDE [Concomitant]
     Active Substance: TRAZODONE HYDROCHLORIDE
     Indication: Insomnia
     Dosage: FORM STRENGTH-50MG
     Route: 048
     Dates: start: 20240503, end: 20240520
  67. TRAZODONE HYDROCHLORIDE [Concomitant]
     Active Substance: TRAZODONE HYDROCHLORIDE
     Indication: Insomnia
     Route: 048
     Dates: start: 20240531
  68. PANTOPRAZOLE SODIUM [Concomitant]
     Active Substance: PANTOPRAZOLE SODIUM
     Indication: Abdominal pain upper
     Dosage: FORM STRENGTH- 20MG
     Route: 048
     Dates: start: 20240923, end: 20240929
  69. PANTOPRAZOLE SODIUM [Concomitant]
     Active Substance: PANTOPRAZOLE SODIUM
     Indication: Abdominal pain upper
     Dosage: FORM STRENGTH- 40MG
     Route: 042
     Dates: start: 20240913, end: 20240913
  70. JARDIANCE [Concomitant]
     Active Substance: EMPAGLIFLOZIN
     Indication: Cardiac failure
     Route: 048
     Dates: start: 20240426, end: 20240621
  71. JARDIANCE [Concomitant]
     Active Substance: EMPAGLIFLOZIN
     Indication: Cardiac failure
     Route: 048
     Dates: start: 20240715
  72. Jeil morphine hcl [Concomitant]
     Indication: Premedication
     Dosage: 25MG/0.5ML
     Route: 030
     Dates: start: 20241002, end: 20241002
  73. MIDACUM [Concomitant]
     Indication: Premedication
     Dosage: FORM STRENGTH- 5 MG
     Route: 042
     Dates: start: 20240412, end: 20240412
  74. Tacenol 8 hours er [Concomitant]
     Indication: Abdominal pain upper
     Dosage: TIME INTERVAL: 0.33333333 DAYS
     Route: 048
     Dates: start: 20240909
  75. GASTER [Concomitant]
     Active Substance: FAMOTIDINE
     Indication: Abdominal pain upper
     Route: 042
     Dates: start: 20240417, end: 20240417
  76. LASIX [Concomitant]
     Active Substance: FUROSEMIDE
     Indication: Prophylaxis
     Route: 042
     Dates: start: 20240617, end: 20240617
  77. LASIX [Concomitant]
     Active Substance: FUROSEMIDE
     Indication: Prophylaxis
     Route: 042
     Dates: start: 20240831, end: 20240831
  78. LASIX [Concomitant]
     Active Substance: FUROSEMIDE
     Indication: Prophylaxis
     Dosage: UNIT DOSE- 10-20 MG
     Route: 042
     Dates: start: 20240617, end: 20240617
  79. PREDNISOLONE [Concomitant]
     Active Substance: PREDNISOLONE
     Indication: Thrombocytopenia
     Route: 048
     Dates: start: 20240519
  80. TRAMADOL HYDROCHLORIDE [Concomitant]
     Active Substance: TRAMADOL HYDROCHLORIDE
     Indication: Headache
     Dosage: DOSAGE: 50 MG/ML
     Route: 042
     Dates: start: 20240517, end: 20240519
  81. TRAMADOL HYDROCHLORIDE [Concomitant]
     Active Substance: TRAMADOL HYDROCHLORIDE
     Indication: Headache
     Dosage: DOSAGE: 50 MG/ML
     Route: 042
     Dates: start: 20240512, end: 20240512
  82. TRAMADOL HYDROCHLORIDE [Concomitant]
     Active Substance: TRAMADOL HYDROCHLORIDE
     Indication: Headache
     Dosage: DOSAGE: 50 MG/ML
     Route: 042
     Dates: start: 20240410, end: 20240416
  83. TRAMADOL HYDROCHLORIDE [Concomitant]
     Active Substance: TRAMADOL HYDROCHLORIDE
     Indication: Headache
     Dosage: DOSAGE: 50 MG/ML
     Route: 042
     Dates: start: 20240516, end: 20240516
  84. HEPACON [Concomitant]
     Indication: Prophylaxis
     Route: 048
     Dates: start: 20240415, end: 20240422
  85. NORVASC [Concomitant]
     Active Substance: AMLODIPINE BESYLATE
     Indication: Hypertension
     Dosage: FORM STRENGTH- 5MG
     Route: 048
     Dates: start: 20240423, end: 20240520
  86. NORVASC [Concomitant]
     Active Substance: AMLODIPINE BESYLATE
     Indication: Hypertension
     Dosage: FORM STRENGTH- 5MG
     Route: 048
     Dates: start: 20241002, end: 20241002
  87. NORVASC [Concomitant]
     Active Substance: AMLODIPINE BESYLATE
     Indication: Hypertension
     Dosage: FORM STRENGTH- 5MG
     Route: 048
     Dates: start: 20241001, end: 20241001
  88. Dulackhan [Concomitant]
     Indication: Constipation
     Dosage: TIME INTERVAL: 0.33333333 DAYS
     Route: 048
     Dates: start: 20240505, end: 20240507
  89. Dulackhan [Concomitant]
     Indication: Constipation
     Dosage: TIME INTERVAL: 0.33333333 DAYS
     Route: 048
     Dates: start: 20240508, end: 20240520
  90. Uropa sr [Concomitant]
     Indication: Dysuria
     Dosage: FORM STRENGTH- 0.4MG
     Route: 048
     Dates: start: 20240620
  91. PHAZYME [Concomitant]
     Active Substance: DIMETHICONE 410
     Indication: Gastrointestinal disorder prophylaxis
     Dosage: TIME INTERVAL: 0.33333333 DAYS
     Route: 048
     Dates: start: 20241004, end: 20241021
  92. Mypol [Concomitant]
     Indication: Abdominal pain upper
     Dosage: TIME INTERVAL: 0.33333333 DAYS
     Route: 048
     Dates: start: 20241002, end: 20241002
  93. MIRAPEX [Concomitant]
     Active Substance: PRAMIPEXOLE DIHYDROCHLORIDE
     Indication: Restless legs syndrome
     Dosage: FORM STRENGTH- 0.125MG
     Route: 048
     Dates: start: 20240422, end: 20240621
  94. MIRAPEX [Concomitant]
     Active Substance: PRAMIPEXOLE DIHYDROCHLORIDE
     Indication: Restless legs syndrome
     Dosage: FORM STRENGTH- 0.125MG
     Route: 048
     Dates: start: 20240701, end: 20241021
  95. NOLTEC [Concomitant]
     Indication: Gastritis prophylaxis
     Route: 048
     Dates: start: 20241004, end: 20241021
  96. AMBISOME [Concomitant]
     Active Substance: AMPHOTERICIN B
     Indication: Antifungal prophylaxis
     Route: 042
     Dates: start: 20240925, end: 20241001
  97. OTRON [Concomitant]
     Indication: Nausea
     Dosage: FORM STRENGTH- 4 ML
     Route: 042
     Dates: start: 20241002, end: 20241002
  98. DIETARY SUPPLEMENT\HERBALS\MILK THISTLE [Concomitant]
     Active Substance: MILK THISTLE
     Indication: Liver function test increased
     Dosage: TIME INTERVAL: 0.33333333 DAYS
     Route: 048
     Dates: start: 20240927, end: 20240929
  99. URSODIOL [Concomitant]
     Active Substance: URSODIOL
     Indication: Liver function test increased
     Dosage: TIME INTERVAL: 0.33333333 DAYS
     Route: 048
     Dates: start: 20240927, end: 20241021
  100. RAMOSETRON HYDROCHLORIDE [Concomitant]
     Active Substance: RAMOSETRON HYDROCHLORIDE
     Indication: Nausea
     Dosage: FORM STRENGTH- 0.3MG
     Route: 042
     Dates: start: 20241002, end: 20241002
  101. Dong a perdipine [Concomitant]
     Indication: Hypertension
     Dosage: FORM STRENGTH-10ML
     Route: 042
     Dates: start: 20241001, end: 20241001
  102. SALON [Concomitant]
     Indication: Premedication
     Dosage: UNIT DOSE : 0.5 VIAL
     Route: 042
     Dates: start: 20240913, end: 20240913

REACTIONS (3)
  - Syncope [Recovered/Resolved]
  - Pneumonia [Recovered/Resolved]
  - Pneumonia [Recovered/Resolved]

NARRATIVE: CASE EVENT DATE: 20240608
